FAERS Safety Report 19077872 (Version 1)
Quarter: 2021Q1

REPORT INFORMATION
  Report Type: Spontaneous
  Country: FR (occurrence: FR)
  Receive Date: 20210331
  Receipt Date: 20210331
  Transmission Date: 20210420
  Serious: Yes (Death, Hospitalization)
  Sender: FDA-Public Use
  Company Number: FR-ORION CORPORATION ORION PHARMA-21_00013778

PATIENT
  Age: 58 Year
  Sex: Female
  Weight: 74 kg

DRUGS (11)
  1. KARDEGIC [Suspect]
     Active Substance: ASPIRIN DL-LYSINE
     Indication: PERIPHERAL ISCHAEMIA
     Route: 048
     Dates: start: 20210208, end: 20210222
  2. ERYTHROMYCINE [Suspect]
     Active Substance: ERYTHROMYCIN
     Indication: PRODUCT USED FOR UNKNOWN INDICATION
     Route: 065
     Dates: start: 20210217, end: 20210222
  3. ACIDE FOLIQUE [Suspect]
     Active Substance: FOLIC ACID
     Indication: RHEUMATOID ARTHRITIS
     Route: 048
     Dates: start: 20210213, end: 20210222
  4. NORADRENALINE [Concomitant]
     Active Substance: NOREPINEPHRINE
     Route: 042
     Dates: start: 20210208
  5. IOMERON [Suspect]
     Active Substance: IOMEPROL
     Indication: PRODUCT USED FOR UNKNOWN INDICATION
     Route: 042
     Dates: start: 20210210, end: 20210210
  6. NEFOPAM [Suspect]
     Active Substance: NEFOPAM
     Indication: PAIN
     Route: 065
     Dates: start: 20210208, end: 20210222
  7. LACTEOL [LACTOBACILLUS ACIDOPHILUS] [Suspect]
     Active Substance: LACTOBACILLUS ACIDOPHILUS
     Indication: PRODUCT USED FOR UNKNOWN INDICATION
     Route: 048
     Dates: start: 20210208, end: 20210222
  8. XENETIX [Suspect]
     Active Substance: IOBITRIDOL
     Indication: PRODUCT USED FOR UNKNOWN INDICATION
     Route: 042
     Dates: start: 20210208, end: 20210208
  9. METHOTREXATE (TRADE NAME UNKNOWN) [Suspect]
     Active Substance: METHOTREXATE
     Indication: RHEUMATOID ARTHRITIS
     Route: 048
     Dates: start: 20210220, end: 20210220
  10. CORDARONE [Suspect]
     Active Substance: AMIODARONE HYDROCHLORIDE
     Indication: ATRIAL FIBRILLATION
     Dosage: STRNGTH: 150 MG/3 ML
     Route: 042
     Dates: start: 20210208, end: 20210222
  11. CORTANCYL [Suspect]
     Active Substance: PREDNISONE
     Indication: RHEUMATOID ARTHRITIS
     Route: 048
     Dates: start: 20210217, end: 20210222

REACTIONS (1)
  - Stevens-Johnson syndrome [Fatal]

NARRATIVE: CASE EVENT DATE: 20210222
